FAERS Safety Report 5706241-5 (Version None)
Quarter: 2008Q2

REPORT INFORMATION
  Report Type: 
  Country: None (occurrence: None)
  Receive Date: 20080415
  Receipt Date: 20080411
  Transmission Date: 20081010
  Serious: Yes (Hospitalization)
  Sender: FDA-Public Use
  Company Number: JP-BOEHRINGER INGELHEIM GMBH, GERMANY-2008-BP-01289NB

PATIENT
  Sex: Male
  Weight: 60 kg

DRUGS (14)
  1. MICARDIS [Suspect]
     Indication: HYPERTENSION
     Route: 048
     Dates: start: 20061117, end: 20070815
  2. BUFFERIN [Concomitant]
     Route: 048
  3. ECBARL [Concomitant]
     Route: 048
  4. ASASION [Concomitant]
     Route: 048
  5. ITOROL [Concomitant]
     Route: 048
  6. GASPORT [Concomitant]
     Route: 048
  7. HARNAL [Concomitant]
     Route: 048
  8. HALFDIGOXIN [Concomitant]
     Route: 048
  9. ALOSITOL [Concomitant]
     Route: 048
  10. BASEN [Concomitant]
     Route: 048
  11. LASIX [Concomitant]
     Indication: HYPERTENSION
     Route: 048
  12. ARTIST [Concomitant]
     Indication: HYPERTENSION
     Route: 048
  13. MAGNESIUM OXIDE [Concomitant]
     Route: 048
  14. NOVOLIN [Concomitant]
     Route: 023

REACTIONS (3)
  - AORTIC ANEURYSM [None]
  - BLOOD PRESSURE DECREASED [None]
  - WEIGHT DECREASED [None]
